FAERS Safety Report 10395560 (Version 1)
Quarter: 2014Q1

REPORT INFORMATION
  Report Type: Spontaneous
  Country: US (occurrence: None)
  Receive Date: 20130107
  Receipt Date: 20130107
  Transmission Date: 20141002
  Serious: No
  Sender: FDA-Public Use
  Company Number: PHEH2012US011305

PATIENT
  Age: 27 Year
  Sex: Female
  Weight: 54.4 kg

DRUGS (1)
  1. GILENYA (FTY) CAPSULE, 0.5MG [Suspect]
     Indication: MULTIPLE SCLEROSIS
     Dates: start: 20120522

REACTIONS (3)
  - Photopsia [None]
  - Vision blurred [None]
  - Eye pain [None]
